FAERS Safety Report 5822544-8 (Version None)
Quarter: 2008Q3

REPORT INFORMATION
  Report Type: 
  Country: None (occurrence: None)
  Receive Date: 20080725
  Receipt Date: 20080116
  Transmission Date: 20090109
  Serious: No
  Sender: FDA-Public Use
  Company Number: US-AMGEN-KDL261434

PATIENT
  Sex: Male
  Weight: 68.6 kg

DRUGS (7)
  1. PROCRIT [Suspect]
     Indication: RENAL FAILURE CHRONIC
     Dates: start: 20010101
  2. SYNTHROID [Concomitant]
  3. FOLIC ACID [Concomitant]
  4. TORSEMIDE [Concomitant]
  5. METOLAZONE [Concomitant]
  6. VITAMIN CAP [Concomitant]
  7. OXYGEN [Concomitant]

REACTIONS (2)
  - ARTHRALGIA [None]
  - DRUG INEFFECTIVE [None]
